FAERS Safety Report 8480518-5 (Version None)
Quarter: 2012Q3

REPORT INFORMATION
  Report Type: 
  Country: None (occurrence: None)
  Receive Date: 20120702
  Receipt Date: 20120622
  Transmission Date: 20120928
  Serious: No
  Sender: FDA-Public Use
  Company Number: US-BIOGENIDEC-2012BI022180

PATIENT
  Age: 56 Year
  Sex: Female

DRUGS (5)
  1. TYSABRI [Suspect]
     Indication: MULTIPLE SCLEROSIS
     Route: 042
     Dates: start: 20120621
  2. SOLU-MEDROL [Concomitant]
     Indication: PREMEDICATION
  3. AVONEX [Concomitant]
     Route: 030
  4. BENADRYL [Concomitant]
     Indication: PREMEDICATION
  5. AVONEX [Concomitant]
     Indication: MULTIPLE SCLEROSIS
     Route: 030
     Dates: start: 20020606

REACTIONS (1)
  - DYSPNOEA [None]
